FAERS Safety Report 17990659 (Version 4)
Quarter: 2020Q3

REPORT INFORMATION
  Report Type: Other
  Country: FR (occurrence: FR)
  Receive Date: 20200707
  Receipt Date: 20200903
  Transmission Date: 20201103
  Serious: Yes (Hospitalization)
  Sender: FDA-Public Use
  Company Number: FR-ROCHE-2633712

PATIENT
  Age: 72 Year
  Sex: Female
  Weight: 76 kg

DRUGS (16)
  1. SPASFON [Concomitant]
     Indication: CONSTIPATION
     Dates: start: 20191123
  2. TRAMADOL. [Concomitant]
     Active Substance: TRAMADOL
     Indication: ABDOMINAL PAIN
     Dates: start: 20191128
  3. CACIT VITAMIN D3 [Concomitant]
     Active Substance: CALCIUM CARBONATE\CHOLECALCIFEROL
     Indication: HYPOCALCAEMIA
  4. PREDNISONE. [Concomitant]
     Active Substance: PREDNISONE
     Indication: CONSTIPATION
  5. SANDOSTATINE [Concomitant]
     Active Substance: OCTREOTIDE ACETATE
     Indication: CONSTIPATION
     Dates: start: 20191128
  6. SANDOSTATINE [Concomitant]
     Active Substance: OCTREOTIDE ACETATE
     Indication: CHRONIC OBSTRUCTIVE PULMONARY DISEASE
  7. MOVENTIG [Concomitant]
     Active Substance: NALOXEGOL OXALATE
     Dates: start: 20191128
  8. SALBUTAMOL [Concomitant]
     Active Substance: ALBUTEROL
     Indication: CHRONIC OBSTRUCTIVE PULMONARY DISEASE
  9. LACTULOSE. [Concomitant]
     Active Substance: LACTULOSE
     Indication: CONSTIPATION
  10. XANAX [Concomitant]
     Active Substance: ALPRAZOLAM
     Indication: INSOMNIA
  11. PREDNISONE. [Concomitant]
     Active Substance: PREDNISONE
     Indication: CHRONIC OBSTRUCTIVE PULMONARY DISEASE
  12. ATEZOLIZUMAB. [Suspect]
     Active Substance: ATEZOLIZUMAB
     Indication: NEOPLASM MALIGNANT
     Dosage: DATE OF MOST RECENT DOSE OF ATEZOLIZUMAB PRIOR TO SAE ONSET:22/NOV/2019
     Route: 041
     Dates: start: 20191121
  13. ATEZOLIZUMAB. [Suspect]
     Active Substance: ATEZOLIZUMAB
     Route: 042
     Dates: start: 20191122
  14. IPRATROPIUM [Concomitant]
     Active Substance: IPRATROPIUM
     Indication: CHRONIC OBSTRUCTIVE PULMONARY DISEASE
  15. ZOPICLONE [Concomitant]
     Active Substance: ZOPICLONE
     Indication: INSOMNIA
  16. LANSOPRAZOLE. [Concomitant]
     Active Substance: LANSOPRAZOLE
     Indication: ABDOMINAL PAIN UPPER

REACTIONS (3)
  - Nausea [Not Recovered/Not Resolved]
  - Bacteraemia [Recovered/Resolved]
  - Tumour hyperprogression [Not Recovered/Not Resolved]

NARRATIVE: CASE EVENT DATE: 20191123
